FAERS Safety Report 6392917-6 (Version None)
Quarter: 2009Q4

REPORT INFORMATION
  Report Type: 
  Country: None (occurrence: None)
  Receive Date: 20091007
  Receipt Date: 20090918
  Transmission Date: 20100525
  Serious: No
  Sender: FDA-Public Use
  Company Number: US-ALLERGAN-0913096US

PATIENT
  Age: 55 Year
  Sex: Female

DRUGS (6)
  1. LATISSE [Suspect]
     Indication: HYPOTRICHOSIS
     Dosage: 1 GTT, QHS
     Route: 061
     Dates: start: 20090913
  2. LATISSE [Suspect]
     Indication: ACCIDENTAL EXPOSURE
  3. PATANOL [Concomitant]
     Indication: EYE ALLERGY
  4. PATANOL [Concomitant]
     Indication: DRY EYE
  5. MASCARA [Concomitant]
  6. PERMANENT MAKE-UP [Concomitant]

REACTIONS (3)
  - ACCIDENTAL EXPOSURE [None]
  - ERYTHEMA OF EYELID [None]
  - EYE PRURITUS [None]
